FAERS Safety Report 4636590-3 (Version None)
Quarter: 2005Q2

REPORT INFORMATION
  Report Type: 
  Country: None (occurrence: None)
  Receive Date: 20050415
  Receipt Date: 20050125
  Transmission Date: 20051028
  Serious: Yes (Other)
  Sender: FDA-Public Use
  Company Number: PHEH2005US01276

PATIENT
  Age: 51 Year
  Sex: Female

DRUGS (10)
  1. ZOMETA [Suspect]
     Indication: BREAST CANCER METASTATIC
     Dosage: 4 MG, QMO
     Dates: start: 20020101, end: 20041001
  2. ADRIAMYCIN PFS [Concomitant]
  3. CYCLOPHOSPHAMIDE [Concomitant]
  4. LUPRON [Concomitant]
  5. AROMASIN [Concomitant]
  6. TAMOXIFEN CITRATE [Concomitant]
  7. XELODA [Concomitant]
  8. CELEBREX [Concomitant]
  9. VINORELBINE TARTRATE [Concomitant]
  10. DEXAMETHASONE [Concomitant]
     Indication: PREMEDICATION

REACTIONS (9)
  - ANAEMIA [None]
  - BONE DISORDER [None]
  - DENTAL OPERATION [None]
  - INFLAMMATION [None]
  - INJURY [None]
  - INTUBATION COMPLICATION [None]
  - OSTEONECROSIS [None]
  - PAIN [None]
  - SURGERY [None]
